FAERS Safety Report 6402897-2 (Version None)
Quarter: 2009Q4

REPORT INFORMATION
  Report Type: 
  Country: None (occurrence: None)
  Receive Date: 20091014
  Receipt Date: 20091014
  Transmission Date: 20100525
  Serious: Yes (Hospitalization)
  Sender: FDA-Public Use
  Company Number: None

PATIENT
  Age: 84 Year
  Sex: Male
  Weight: 66.2 kg

DRUGS (2)
  1. METOPROLOL TARTRATE [Suspect]
     Indication: HYPERTENSION
     Dosage: 25 MG BID PO
     Route: 048
     Dates: start: 20040928, end: 20091007
  2. PREGABALIN [Suspect]
     Indication: NEURALGIA
     Dosage: 75 MG BID PO
     Route: 048
     Dates: start: 20081008, end: 20091007

REACTIONS (2)
  - BRADYCARDIA [None]
  - SYNCOPE [None]
